FAERS Safety Report 5262160-2 (Version None)
Quarter: 2007Q1

REPORT INFORMATION
  Report Type: 
  Country: None (occurrence: None)
  Receive Date: 20070308
  Receipt Date: 20070222
  Transmission Date: 20070707
  Serious: Yes (Other)
  Sender: FDA-Public Use
  Company Number: 2007SP003466

PATIENT

DRUGS (2)
  1. POSACONAZOLE [Suspect]
     Indication: CEREBRAL ASPERGILLOSIS
  2. AMPHOTERICIN (CON.) [Concomitant]

REACTIONS (1)
  - THROMBOCYTOPENIA [None]
